FAERS Safety Report 17154304 (Version 5)
Quarter: 2020Q4

REPORT INFORMATION
  Report Type: Report from Study
  Country: US (occurrence: US)
  Receive Date: 20191213
  Receipt Date: 20201102
  Transmission Date: 20210113
  Serious: Yes (Death, Other)
  Sender: FDA-Public Use
  Company Number: NVSC2019US007316

PATIENT
  Age: 82 Year
  Sex: Male

DRUGS (3)
  1. FLUDARABINE [Concomitant]
     Active Substance: FLUDARABINE PHOSPHATE
     Indication: CHEMOTHERAPY
     Dosage: UNK
     Route: 065
  2. CYCLOPHOSPHAMIDE. [Concomitant]
     Active Substance: CYCLOPHOSPHAMIDE
     Indication: CHEMOTHERAPY
     Dosage: UNK
     Route: 065
  3. KYMRIAH [Suspect]
     Active Substance: TISAGENLECLEUCEL
     Indication: DIFFUSE LARGE B-CELL LYMPHOMA
     Dosage: UNK, ONCE/SINGLE
     Route: 041
     Dates: start: 20190104

REACTIONS (12)
  - Rhinovirus infection [Unknown]
  - Haemoglobin decreased [Unknown]
  - Pneumonia [Fatal]
  - Diffuse large B-cell lymphoma recurrent [Unknown]
  - Lymphocyte count decreased [Unknown]
  - Sinusitis [Unknown]
  - White blood cell count decreased [Unknown]
  - Neutrophil count decreased [Recovered/Resolved]
  - Enterococcal infection [Unknown]
  - Haematocrit decreased [Unknown]
  - Platelet count decreased [Recovered/Resolved]
  - Upper respiratory tract infection [Unknown]
